FAERS Safety Report 4351033-5 (Version None)
Quarter: 2004Q2

REPORT INFORMATION
  Report Type: 
  Country: None (occurrence: None)
  Receive Date: 20040428
  Receipt Date: 20030904
  Transmission Date: 20050107
  Serious: Yes (Hospitalization)
  Sender: FDA-Public Use
  Company Number: 346166

PATIENT
  Age: 66 Year
  Sex: Female

DRUGS (4)
  1. NAPROXEN [Suspect]
     Indication: DRUG USE FOR UNKNOWN INDICATION
     Dosage: 2 PER DAY ORAL
     Route: 048
     Dates: start: 20030615, end: 20030615
  2. PLAVIX [Concomitant]
  3. ZOCOR [Concomitant]
  4. PREMARIN [Concomitant]

REACTIONS (1)
  - HAEMORRHAGE [None]
